FAERS Safety Report 15944091 (Version 4)
Quarter: 2019Q1

REPORT INFORMATION
  Report Type: Spontaneous
  Country: HU (occurrence: HU)
  Receive Date: 20190211
  Receipt Date: 20190325
  Transmission Date: 20190417
  Serious: Yes (Hospitalization, Other)
  Sender: FDA-Public Use
  Company Number: HU-ROCHE-2262102

PATIENT
  Age: 5 Year
  Sex: Male

DRUGS (3)
  1. HEMLIBRA [Suspect]
     Active Substance: EMICIZUMAB-KXWH
     Dosage: MAINTENANCE DOSE
     Route: 058
     Dates: start: 201811, end: 20190212
  2. HEMLIBRA [Suspect]
     Active Substance: EMICIZUMAB-KXWH
     Indication: HAEMOPHILIA
     Dosage: LOADING DOSE
     Route: 058
     Dates: start: 20181002, end: 201811
  3. HEMLIBRA [Suspect]
     Active Substance: EMICIZUMAB-KXWH
     Dosage: MAINTENANCE DOSE
     Route: 058
     Dates: start: 20190212

REACTIONS (3)
  - Pneumonia [Recovered/Resolved]
  - Skin necrosis [Unknown]
  - Sepsis [Recovered/Resolved]

NARRATIVE: CASE EVENT DATE: 20190205
